FAERS Safety Report 5492349-9 (Version None)
Quarter: 2007Q4

REPORT INFORMATION
  Report Type: 
  Country: None (occurrence: None)
  Receive Date: 20071015
  Receipt Date: 20070723
  Transmission Date: 20080405
  Serious: No
  Sender: FDA-Public Use
  Company Number: 2007SP002613

PATIENT
  Age: 69 Year
  Sex: Female
  Weight: 67.1324 kg

DRUGS (6)
  1. LUNESTA [Suspect]
     Indication: INSOMNIA
     Dosage: 1.5 MG; 1X;ORAL   3 MG;HS;ORAL
     Route: 048
     Dates: start: 20070720, end: 20070720
  2. LUNESTA [Suspect]
     Indication: INSOMNIA
     Dosage: 1.5 MG; 1X;ORAL   3 MG;HS;ORAL
     Route: 048
     Dates: start: 20070721, end: 20070722
  3. PAXIL [Concomitant]
  4. XANAX [Concomitant]
  5. TRAZODONE HCL [Concomitant]
  6. AMBIEN [Concomitant]

REACTIONS (2)
  - INITIAL INSOMNIA [None]
  - RASH [None]
